FAERS Safety Report 24179367 (Version 1)
Quarter: 2024Q3

REPORT INFORMATION
  Report Type: Spontaneous
  Country: IN (occurrence: IN)
  Receive Date: 20240806
  Receipt Date: 20240806
  Transmission Date: 20241016
  Serious: Yes (Other)
  Sender: MYLAN
  Company Number: IN-MYLANLABS-2024M1072207

PATIENT
  Age: 3 Month
  Sex: Male

DRUGS (5)
  1. HEPARIN [Suspect]
     Active Substance: HEPARIN SODIUM
     Indication: Aneurysm
     Dosage: 2 MILLIGRAM/KILOGRAM, QD
     Route: 065
  2. HEPARIN [Suspect]
     Active Substance: HEPARIN SODIUM
     Indication: Kawasaki^s disease
  3. ASPIRIN [Suspect]
     Active Substance: ASPIRIN
     Indication: Aneurysm
     Dosage: UNK
     Route: 065
  4. ASPIRIN [Suspect]
     Active Substance: ASPIRIN
     Indication: Kawasaki^s disease
  5. Immunoglobulin [Concomitant]
     Indication: Product used for unknown indication
     Dosage: DOSE: 2GM/KG
     Route: 065

REACTIONS (2)
  - Drug ineffective for unapproved indication [Unknown]
  - Off label use [Unknown]
